FAERS Safety Report 8431529-7 (Version None)
Quarter: 2012Q2

REPORT INFORMATION
  Report Type: 
  Country: None (occurrence: None)
  Receive Date: 20120323
  Receipt Date: 20111219
  Transmission Date: 20120825
  Serious: Yes (Hospitalization, Other)
  Sender: FDA-Public Use
  Company Number: 163-21880-11062688

PATIENT
  Age: 88 Year
  Sex: Male
  Weight: 79 kg

DRUGS (13)
  1. FOLIC ACID [Concomitant]
  2. GABAPENTIN [Concomitant]
  3. REVLIMID [Suspect]
     Indication: MULTIPLE MYELOMA
     Dosage: 5 MG, DAILY X 3 WEEKS EACH CHEMO
     Dates: start: 20101108, end: 20110601
  4. DEXAMETHASONE [Concomitant]
  5. TORSEMIDE [Concomitant]
  6. ASPIRIN [Concomitant]
  7. MELPHALAN HYDROCHLORIDE [Concomitant]
  8. BACTRIM DS [Concomitant]
  9. VENOFER [Concomitant]
  10. OMEPRAZOLE [Concomitant]
  11. LEVOTHYROXINE SODIUM [Concomitant]
  12. POTASSIUM CHLORIDE [Concomitant]
  13. CALCIUM CITRATE-VITAMIN D3(CALCIUM CITRATE W/COLECALCIFEROL) [Concomitant]

REACTIONS (7)
  - MULTIPLE MYELOMA [None]
  - FALL [None]
  - ASTHENIA [None]
  - HYPOTENSION [None]
  - FLUID OVERLOAD [None]
  - RASH [None]
  - CARDIAC FAILURE CONGESTIVE [None]
